FAERS Safety Report 15957287 (Version 2)
Quarter: 2019Q1

REPORT INFORMATION
  Report Type: Report from Study
  Country: US (occurrence: US)
  Receive Date: 20190213
  Receipt Date: 20190306
  Transmission Date: 20190417
  Serious: Yes (Hospitalization, Other)
  Sender: FDA-Public Use
  Company Number: US-ADAMAS PHARMA, LLC-2019ADA00082

PATIENT
  Age: 81 Year
  Sex: Male
  Weight: 58.05 kg

DRUGS (20)
  1. FLUOXETINE [Concomitant]
     Active Substance: FLUOXETINE HYDROCHLORIDE
     Dosage: 40 MG, 1X/DAY AT BEDTIME
     Route: 048
  2. LETAIRIS [Concomitant]
     Active Substance: AMBRISENTAN
  3. APIXABAN [Concomitant]
     Active Substance: APIXABAN
     Dosage: 1 TABLETS, 2X/DAY FOR 12 DAYS
     Route: 048
  4. LACTOBACILLUS RHAMNOSUS [Concomitant]
     Active Substance: LACTOBACILLUS RHAMNOSUS
     Dosage: 1 CAPSULES, 2X/DAY
     Route: 048
  5. NITROGLYCERIN. [Concomitant]
     Active Substance: NITROGLYCERIN
     Dosage: 0.4 MG, AS NEEDED
  6. GOCOVRI [Suspect]
     Active Substance: AMANTADINE
     Indication: DYSKINESIA
     Dosage: 137 MG, 1X/DAY AT BEDTIME
     Route: 048
     Dates: start: 20181204, end: 20181210
  7. POTASSIUM CHLORIDE. [Concomitant]
     Active Substance: POTASSIUM CHLORIDE
     Dosage: 30 ML, 1X/DAY WITH BREAKFAST
     Route: 048
  8. ACETAMINOPHEN. [Concomitant]
     Active Substance: ACETAMINOPHEN
  9. ATENOLOL. [Concomitant]
     Active Substance: ATENOLOL
     Dosage: 25 MG, 1X/DAY AT BEDTIME
     Route: 048
  10. VITAMIN D3 [Concomitant]
     Active Substance: CHOLECALCIFEROL
     Dosage: 6000 U, 1X/DAY
     Route: 048
  11. MEMANTINE. [Concomitant]
     Active Substance: MEMANTINE
     Dosage: 10 MG, 2X/DAY
     Route: 048
  12. SINEMET [Concomitant]
     Active Substance: CARBIDOPA\LEVODOPA
     Dosage: 25 MG, 4X/DAY
     Route: 048
  13. PANTOPRAZOLE [Concomitant]
     Active Substance: PANTOPRAZOLE
  14. LANSOPRAZOLE. [Concomitant]
     Active Substance: LANSOPRAZOLE
     Dosage: 30 MG, 2X/DAY
     Route: 048
  15. GOCOVRI [Suspect]
     Active Substance: AMANTADINE
     Dosage: 274 MG, 1X/DAY AT BEDTIME
     Route: 048
     Dates: start: 20181211
  16. ATORVASTATIN [Concomitant]
     Active Substance: ATORVASTATIN
     Dosage: 10 MG, 1X/DAY
     Route: 048
  17. ASPIRIN. [Concomitant]
     Active Substance: ASPIRIN
     Dosage: 81 MG, 1X/DAY
     Route: 048
  18. COENZYME Q10 [Concomitant]
     Active Substance: UBIDECARENONE
  19. LORATADINE. [Concomitant]
     Active Substance: LORATADINE
     Dosage: 10 MG, UP TO 1X/DAY AS NEEDED
     Route: 048
  20. VISION-VITE PRESERVE OR [Concomitant]
     Dosage: 1 TABLETS, 2X/DAY
     Route: 048

REACTIONS (12)
  - Metabolic encephalopathy [Recovered/Resolved]
  - Gastrostomy [Not Recovered/Not Resolved]
  - Hypokalaemia [Unknown]
  - Loss of consciousness [Not Recovered/Not Resolved]
  - Failure to thrive [Not Recovered/Not Resolved]
  - Tremor [Recovering/Resolving]
  - Internal fixation of fracture [Recovered/Resolved]
  - Fall [Recovered/Resolved]
  - Dysphagia [Recovering/Resolving]
  - Femur fracture [Recovered/Resolved]
  - Pneumonia aspiration [Unknown]
  - Hypernatraemia [Unknown]

NARRATIVE: CASE EVENT DATE: 201812
